FAERS Safety Report 10699513 (Version 1)
Quarter: 2015Q1

REPORT INFORMATION
  Report Type: Spontaneous
  Country: US (occurrence: US)
  Receive Date: 20150109
  Receipt Date: 20150109
  Transmission Date: 20150721
  Serious: No
  Sender: FDA-Public Use
  Company Number: US-BRISTOL-MYERS SQUIBB COMPANY-BMS-2014-006981

PATIENT
  Age: 8 Year
  Sex: Male

DRUGS (1)
  1. ABILIFY [Suspect]
     Active Substance: ARIPIPRAZOLE
     Indication: AUTISM SPECTRUM DISORDER
     Dosage: 0.5 MG, QD
     Route: 065
     Dates: start: 20141223, end: 20141224

REACTIONS (5)
  - Protrusion tongue [Not Recovered/Not Resolved]
  - Somnolence [Not Recovered/Not Resolved]
  - Screaming [Not Recovered/Not Resolved]
  - Facial spasm [Not Recovered/Not Resolved]
  - Glossodynia [Not Recovered/Not Resolved]

NARRATIVE: CASE EVENT DATE: 20141224
